FAERS Safety Report 7049463-6 (Version None)
Quarter: 2010Q4

REPORT INFORMATION
  Report Type: 
  Country: None (occurrence: None)
  Receive Date: 20101007
  Receipt Date: 20100924
  Transmission Date: 20110411
  Serious: Yes (Hospitalization)
  Sender: FDA-Public Use
  Company Number: 019370

PATIENT
  Age: 65 Year
  Sex: Female

DRUGS (2)
  1. KEPPRA [Suspect]
  2. DILANTIN [Suspect]

REACTIONS (1)
  - ADVERSE DRUG REACTION [None]
